FAERS Safety Report 8050960-5 (Version None)
Quarter: 2012Q1

REPORT INFORMATION
  Report Type: 
  Country: None (occurrence: None)
  Receive Date: 20120117
  Receipt Date: 20120110
  Transmission Date: 20120608
  Serious: Yes (Death, Hospitalization)
  Sender: FDA-Public Use
  Company Number: PHHY2011DE87497

PATIENT
  Sex: Female
  Weight: 68 kg

DRUGS (3)
  1. SUTENT [Concomitant]
     Indication: CHEMOTHERAPY
     Dosage: 12.5 MG, DAILY
     Route: 048
     Dates: start: 20110202
  2. ZOMETA [Suspect]
     Indication: BONE DISORDER
     Dosage: 4 MG EVERY 4 WEEKS
     Route: 042
     Dates: start: 20110201
  3. ZOMETA [Suspect]
     Dosage: 4 MG EVER 4 WEEKS
     Route: 042
     Dates: start: 20110301

REACTIONS (8)
  - NEOPLASM MALIGNANT [None]
  - ASTHENIA [None]
  - ANAEMIA [None]
  - NEOPLASM PROGRESSION [None]
  - DECREASED APPETITE [None]
  - ANAEMIA OF MALIGNANT DISEASE [None]
  - GENERAL PHYSICAL HEALTH DETERIORATION [None]
  - INTRA-ABDOMINAL PRESSURE INCREASED [None]
